FAERS Safety Report 24431184 (Version 1)
Quarter: 2024Q4

REPORT INFORMATION
  Report Type: Spontaneous
  Country: GB (occurrence: GB)
  Receive Date: 20241014
  Receipt Date: 20241014
  Transmission Date: 20250115
  Serious: Yes (Hospitalization, Disabling, Other)
  Sender: EMD SERONO INC
  Company Number: GB-MHRA-TPP1948806C10586283YC1728034957338

PATIENT
  Age: 65 Year
  Sex: Male
  Weight: 105 kg

DRUGS (12)
  1. METFORMIN [Suspect]
     Active Substance: METFORMIN HYDROCHLORIDE
     Indication: Ill-defined disorder
     Dosage: WITH BREAKFAST FOR 1
     Dates: start: 20240712
  2. LORAZEPAM [Concomitant]
     Active Substance: LORAZEPAM
     Indication: Ill-defined disorder
     Dosage: CEDURE, CAN REPEAT DOSE IF NOT WELL SETTLED
     Dates: start: 20240905, end: 20240906
  3. TAMSULOSIN HYDROCHLORIDE [Concomitant]
     Active Substance: TAMSULOSIN HYDROCHLORIDE
     Indication: Ill-defined disorder
     Dosage: TAKE ONE CAPSULE DAILY
     Dates: start: 20240910
  4. TIRZEPATIDE [Concomitant]
     Active Substance: TIRZEPATIDE
     Indication: Ill-defined disorder
     Dosage: INJECT 2.5MG ONCE WEEKLY
     Dates: start: 20240916
  5. LANSOPRAZOLE [Concomitant]
     Active Substance: LANSOPRAZOLE
     Indication: Ill-defined disorder
     Dosage: TAKE ONE CAPSULE ONCE A DAY.
     Dates: start: 20231205
  6. ARTIFICIAL SALIVA [Concomitant]
     Indication: Ill-defined disorder
     Dosage: USE AS DIRECTED
     Dates: start: 20240925, end: 20241002
  7. MIRTAZAPINE [Concomitant]
     Active Substance: MIRTAZAPINE
     Indication: Ill-defined disorder
     Dosage: ONE AT NIGHT
     Dates: start: 20240925
  8. DIAZEPAM [Concomitant]
     Active Substance: DIAZEPAM
     Indication: Ill-defined disorder
     Dosage: AS NEEDED
  9. AMLODIPINE [Concomitant]
     Active Substance: AMLODIPINE BESYLATE
     Indication: Ill-defined disorder
     Dosage: TAKE ONE TABLET ONCE A DAY.
     Dates: start: 20231205
  10. ASPIRIN [Concomitant]
     Active Substance: ASPIRIN
     Indication: Ill-defined disorder
     Dosage: TAKE ONE TABLET ONCE A DAY.
     Dates: start: 20231205
  11. ATORVASTATIN [Concomitant]
     Active Substance: ATORVASTATIN
     Indication: Ill-defined disorder
     Dosage: TAKE ONE TABLET ONCE A DAY.
     Dates: start: 20231205
  12. SUKKARTO SR [Concomitant]
     Indication: Ill-defined disorder
     Dosage: TAKE 2 DAILY IN THE MORNING WITH FOOD
     Dates: start: 20240808

REACTIONS (1)
  - Oropharyngeal spasm [Recovering/Resolving]
